FAERS Safety Report 8395418-9 (Version None)
Quarter: 2012Q2

REPORT INFORMATION
  Report Type: 
  Country: None (occurrence: None)
  Receive Date: 20120525
  Receipt Date: 20120525
  Transmission Date: 20120825
  Serious: No
  Sender: FDA-Public Use
  Company Number: None

PATIENT
  Sex: Male

DRUGS (1)
  1. ZOLADEX [Suspect]

REACTIONS (6)
  - INTRA-ABDOMINAL HAEMORRHAGE [None]
  - ARTERIAL INJURY [None]
  - ABDOMINAL DISTENSION [None]
  - ABDOMINAL PAIN [None]
  - SYRINGE ISSUE [None]
  - WRONG TECHNIQUE IN DRUG USAGE PROCESS [None]
